FAERS Safety Report 5514674-5 (Version None)
Quarter: 2007Q4

REPORT INFORMATION
  Report Type: 
  Country: None (occurrence: None)
  Receive Date: 20071113
  Receipt Date: 20071101
  Transmission Date: 20080405
  Serious: Yes (Other)
  Sender: FDA-Public Use
  Company Number: US-PFIZER INC-2007091831

PATIENT
  Age: 51 Year
  Sex: Female

DRUGS (1)
  1. LYRICA [Suspect]
     Indication: FIBROMYALGIA

REACTIONS (6)
  - ABASIA [None]
  - CONFUSIONAL STATE [None]
  - DIZZINESS [None]
  - RASH [None]
  - SUICIDAL IDEATION [None]
  - VISION BLURRED [None]
